FAERS Safety Report 14706032 (Version 1)
Quarter: 2018Q2

REPORT INFORMATION
  Report Type: Spontaneous
  Country: US (occurrence: US)
  Receive Date: 20180402
  Receipt Date: 20180402
  Transmission Date: 20180711
  Serious: Yes (Hospitalization, Other)
  Sender: FDA-Public Use
  Company Number: US-ROCHE-2099390

PATIENT
  Age: 78 Year
  Sex: Male

DRUGS (15)
  1. JAKAFI [Suspect]
     Active Substance: RUXOLITINIB
     Indication: POLYCYTHAEMIA VERA
     Dosage: ONGOING:UNKNOWN
     Route: 048
     Dates: start: 20161216
  2. LOSARTAN. [Concomitant]
     Active Substance: LOSARTAN
  3. VALIUM [Suspect]
     Active Substance: DIAZEPAM
     Indication: CATHETERISATION CARDIAC
     Route: 065
  4. POTASSIUM CHLORIDE. [Concomitant]
     Active Substance: POTASSIUM CHLORIDE
  5. FUROSEMIDE. [Concomitant]
     Active Substance: FUROSEMIDE
  6. IRON [Concomitant]
     Active Substance: IRON
  7. GABAPENTIN. [Concomitant]
     Active Substance: GABAPENTIN
  8. ROPINIROLE. [Concomitant]
     Active Substance: ROPINIROLE
  9. MINOXIDIL. [Concomitant]
     Active Substance: MINOXIDIL
  10. WARFARIN [Concomitant]
     Active Substance: WARFARIN
  11. ALBUTEROL. [Concomitant]
     Active Substance: ALBUTEROL
  12. FIBER [Concomitant]
     Active Substance: PSYLLIUM HUSK
  13. SOTALOL. [Concomitant]
     Active Substance: SOTALOL
  14. MIRALAX [Concomitant]
     Active Substance: POLYETHYLENE GLYCOL 3350
  15. IPRATROPIUM [Concomitant]
     Active Substance: IPRATROPIUM

REACTIONS (7)
  - Aphasia [Unknown]
  - Off label use [Unknown]
  - Intentional product use issue [Unknown]
  - Platelet count increased [Unknown]
  - Abdominal pain upper [Recovered/Resolved]
  - Confusional state [Recovered/Resolved]
  - Agitation [Recovered/Resolved]

NARRATIVE: CASE EVENT DATE: 20161218
